FAERS Safety Report 7602326-7 (Version None)
Quarter: 2011Q3

REPORT INFORMATION
  Report Type: 
  Country: None (occurrence: None)
  Receive Date: 20110712
  Receipt Date: 20110706
  Transmission Date: 20111222
  Serious: Yes (Hospitalization)
  Sender: FDA-Public Use
  Company Number: US-BIOGENIDEC-2010BI015772

PATIENT
  Age: 58 Year
  Sex: Female
  Weight: 93 kg

DRUGS (1)
  1. TYSABRI [Suspect]
     Indication: MULTIPLE SCLEROSIS
     Route: 042
     Dates: start: 20070205

REACTIONS (8)
  - CATARACT [None]
  - INTERVERTEBRAL DISC DISORDER [None]
  - CLAUSTROPHOBIA [None]
  - MULTIPLE SCLEROSIS RELAPSE [None]
  - PAIN [None]
  - ESCHERICHIA URINARY TRACT INFECTION [None]
  - SCIATICA [None]
  - DIABETES MELLITUS [None]
